FAERS Safety Report 21354059 (Version 1)
Quarter: 2022Q3

REPORT INFORMATION
  Report Type: Spontaneous
  Country: FR (occurrence: FR)
  Receive Date: 20220920
  Receipt Date: 20220920
  Transmission Date: 20221026
  Serious: Yes (Life-Threatening)
  Sender: FDA-Public Use
  Company Number: None

PATIENT
  Age: 52 Year
  Sex: Male
  Weight: 100 kg

DRUGS (17)
  1. QUETIAPINE [Suspect]
     Active Substance: QUETIAPINE
     Indication: Schizophrenia
     Dosage: AT BEDTIME
     Dates: end: 20220520
  2. PROPRANOLOL [Suspect]
     Active Substance: PROPRANOLOL HYDROCHLORIDE
     Indication: Hypertension
     Dosage: STRENGTH: 40 MG, AT MORNING
     Dates: end: 20220520
  3. ROSUVASTATIN CALCIUM [Suspect]
     Active Substance: ROSUVASTATIN CALCIUM
     Indication: Hypercholesterolaemia
     Dosage: STRENGTH:  20 MG, AT EVENING
     Dates: end: 20220520
  4. ZUCLOPENTHIXOL [Suspect]
     Active Substance: ZUCLOPENTHIXOL
     Indication: Schizophrenia
     Dosage: PROLONGED ACTION 200 MG/1 ML, SOLUTION FOR INJECTION I.M.. 1 DAY/MONTH
     Dates: end: 20220520
  5. DIOSMIN\HESPERIDIN [Suspect]
     Active Substance: DIOSMIN\HESPERIDIN
     Indication: Product used for unknown indication
     Dosage: STRENGTH: 500MG,500 MG AT MORNING AND EVENING
     Dates: end: 20220520
  6. VALPROATE SODIUM [Suspect]
     Active Substance: VALPROATE SODIUM
     Indication: Epilepsy
     Dosage: 500 MG, SCORED FILM-COATED TABLET WITH PROLONGED RELEASE, 1G IN THE MORNING AND EVENING
     Dates: end: 20220520
  7. ESOMEPRAZOLE [Suspect]
     Active Substance: ESOMEPRAZOLE
     Indication: Gastroduodenal ulcer
     Dosage: STRENGTH: 40 MG, AT EVENING
     Dates: end: 20220520
  8. DISULFIRAM [Suspect]
     Active Substance: DISULFIRAM
     Indication: Alcoholism
     Dosage: STRENGTH: 500 MG, AT MORNING
     Dates: end: 20220520
  9. FOLIC ACID [Suspect]
     Active Substance: FOLIC ACID
     Indication: Product used for unknown indication
     Dosage: STRENGTH: 5 MG, 5 MG AT MORNING EVENING
     Dates: end: 20220520
  10. LOXAPINE [Suspect]
     Active Substance: LOXAPINE
     Indication: Schizophrenia
     Dosage: AT BEDTIME
     Dates: end: 20220520
  11. LORMETAZEPAM [Suspect]
     Active Substance: LORMETAZEPAM
     Indication: Product used for unknown indication
     Dosage: STRENGTH: 2 MG, SCORED TABLET, AT BEDTIME
     Dates: end: 20220520
  12. TRIHEXYPHENIDYL HYDROCHLORIDE [Suspect]
     Active Substance: TRIHEXYPHENIDYL HYDROCHLORIDE
     Indication: Parkinsonism
     Dosage: STRENGTH: 5 MG, 5 MG AT MORNING AND EVENING
     Dates: end: 20220520
  13. SERETIDE [Suspect]
     Active Substance: FLUTICASONE PROPIONATE\SALMETEROL XINAFOATE
     Indication: Asthma
     Dosage: 500/50 MICROGRAMS/DOSE, POWDER FOR INHALATION IN SINGLE-DOSE CONTAINER,
     Dates: end: 20220520
  14. ANETHOLTRITHION [Suspect]
     Active Substance: ANETHOLTRITHION
     Indication: Product used for unknown indication
     Dosage: STRENGTH: 25 MG, COATED TABLET, 25 MG - 2 TABLETS AT MORNING NOON EVENING
     Dates: end: 20220520
  15. VENTOLIN [Suspect]
     Active Substance: ALBUTEROL SULFATE
     Indication: Asthma
     Dates: end: 20220520
  16. OXAZEPAM [Concomitant]
     Active Substance: OXAZEPAM
     Indication: Alcohol withdrawal syndrome
     Dosage: 2 TABLETS OF 50MG IN THE MORNING, NOON AND EVENING
     Dates: end: 20220520
  17. LOXAPINE [Suspect]
     Active Substance: LOXAPINE
     Indication: Schizophrenia
     Dosage: 25 MG IN THE MORNING AND NOON
     Dates: end: 20220520

REACTIONS (1)
  - Hypovolaemic shock [Recovering/Resolving]

NARRATIVE: CASE EVENT DATE: 20220520
